FAERS Safety Report 12318130 (Version 1)
Quarter: 2016Q2

REPORT INFORMATION
  Report Type: Spontaneous
  Country: US (occurrence: US)
  Receive Date: 20160429
  Receipt Date: 20160429
  Transmission Date: 20160815
  Serious: Yes (Hospitalization)
  Sender: FDA-Public Use
  Company Number: US-ASTELLAS-2015US032908

PATIENT
  Age: 57 Year
  Sex: Male

DRUGS (1)
  1. XTANDI [Suspect]
     Active Substance: ENZALUTAMIDE
     Indication: PROSTATE CANCER
     Route: 048
     Dates: start: 20150707

REACTIONS (7)
  - Malaise [Unknown]
  - Mobility decreased [Unknown]
  - Vomiting [Unknown]
  - White blood cell count increased [Unknown]
  - Drug ineffective [Unknown]
  - Pain [Unknown]
  - Hot flush [Unknown]

NARRATIVE: CASE EVENT DATE: 20160315
